FAERS Safety Report 6709794-3 (Version None)
Quarter: 2010Q2

REPORT INFORMATION
  Report Type: 
  Country: None (occurrence: None)
  Receive Date: 20100503
  Receipt Date: 20100503
  Transmission Date: 20101027
  Serious: No
  Sender: FDA-Public Use
  Company Number: None

PATIENT
  Sex: Male
  Weight: 9.5255 kg

DRUGS (2)
  1. CONCENTRATED TYLENOL INFANT DROPS [Suspect]
     Indication: PYREXIA
     Dosage: 1.2 ML 2 TIMES A DAY PO
     Route: 048
     Dates: start: 20100301, end: 20100501
  2. CONCENTRATED TYLENOL INFANT DROPS [Suspect]
     Indication: TEETHING
     Dosage: 1.2 ML 2 TIMES A DAY PO
     Route: 048
     Dates: start: 20100301, end: 20100501

REACTIONS (2)
  - BREAST ENLARGEMENT [None]
  - BREAST MASS [None]
